FAERS Safety Report 17740578 (Version 9)
Quarter: 2021Q4

REPORT INFORMATION
  Report Type: Report from Study
  Country: DE (occurrence: None)
  Receive Date: 20200504
  Receipt Date: 20211124
  Transmission Date: 20220303
  Serious: Yes (Hospitalization)
  Sender: FDA-Public Use
  Company Number: DE-ROCHE-2591786

PATIENT
  Age: 63 Year
  Sex: Female
  Weight: 67.7 kg

DRUGS (12)
  1. ATEZOLIZUMAB [Suspect]
     Active Substance: ATEZOLIZUMAB
     Indication: HER2 positive breast cancer
     Dosage: MOST RECENT DOSE OF ATEZOLIZUMAB PRIOR TO EVENT ONSET: 15/APR/2020 (840 MG)
     Route: 041
     Dates: start: 20200304
  2. DOXORUBICIN [Suspect]
     Active Substance: DOXORUBICIN
     Indication: HER2 positive breast cancer
     Dosage: MOST RECENT DOSE OF DOXORUBICIN PRIOR TO EVENT ONSET: 15/APR/2020 106 MG
     Route: 042
     Dates: start: 20200304
  3. CYCLOPHOSPHAMIDE [Suspect]
     Active Substance: CYCLOPHOSPHAMIDE
     Indication: HER2 positive breast cancer
     Dosage: MOST RECENT DOSE 1056 MG OF CYCLOPHOSPHAMIDE PRIOR TO EVENT ONSET: 15/APR/2020
     Route: 042
     Dates: start: 20200304
  4. AKYNZEO [Concomitant]
     Active Substance: NETUPITANT\PALONOSETRON HYDROCHLORIDE
     Indication: Nausea
     Route: 048
     Dates: start: 20200304, end: 20200415
  5. DEXAMETHASONE [Concomitant]
     Active Substance: DEXAMETHASONE
     Indication: Nausea
     Route: 042
     Dates: start: 20200304, end: 20200415
  6. DEXAMETHASONE [Concomitant]
     Active Substance: DEXAMETHASONE
     Route: 048
     Dates: start: 20200305, end: 20200415
  7. MESNA [Concomitant]
     Active Substance: MESNA
     Route: 048
     Dates: start: 20200304, end: 20200415
  8. RAMIPRIL [Concomitant]
     Active Substance: RAMIPRIL
     Indication: Hypertonia
     Route: 048
     Dates: start: 2014, end: 20210201
  9. LEVOTHYROXINE SODIUM [Concomitant]
     Active Substance: LEVOTHYROXINE SODIUM
     Indication: Hyperthyroidism
     Dosage: 112 UG
     Dates: start: 2015
  10. CANDESARTAN [Concomitant]
     Active Substance: CANDESARTAN
     Indication: Hypertonia
  11. PACLITAXEL [Concomitant]
     Active Substance: PACLITAXEL
     Dates: start: 20200520, end: 20210720
  12. TRASTUZUMAB [Concomitant]
     Active Substance: TRASTUZUMAB
     Dates: start: 20200520, end: 20210720

REACTIONS (1)
  - Ejection fraction decreased [Not Recovered/Not Resolved]

NARRATIVE: CASE EVENT DATE: 20200422
